FAERS Safety Report 9608456 (Version 2)
Quarter: 2014Q1

REPORT INFORMATION
  Report Type: Spontaneous
  Country: KR (occurrence: None)
  Receive Date: 20131007
  Receipt Date: 20140124
  Transmission Date: 20141002
  Serious: Yes (Death)
  Sender: FDA-Public Use
  Company Number: 1936438

PATIENT
  Age: 70 Year
  Sex: Male
  Weight: 53 kg

DRUGS (12)
  1. DEXMEDETOMIDINE HYDROCHLORIDE [Suspect]
     Indication: SEDATION
     Dosage: 4 MCG/ML, UNKNOWN, INTRAVENOUS (NOT OTHERWISE SPECIFIED)?
     Route: 042
     Dates: start: 20130923, end: 20130923
  2. LASIX [Concomitant]
  3. MUSCLE RELAXANTS [Concomitant]
  4. NORPIN [Concomitant]
  5. ALL OTHER THERAPEUTIC PRODUCTS [Concomitant]
     Dosage: 500 MG IV.
     Dates: start: 20130923, end: 20130923
  6. HEPARIN [Concomitant]
  7. TAZOCIN [Concomitant]
  8. ZITHROMAX [Concomitant]
  9. CRAVIT [Concomitant]
  10. MIDAZOLAM [Concomitant]
  11. NORPINE [Concomitant]
  12. ROCEPHIN [Concomitant]

REACTIONS (4)
  - Pneumonia [None]
  - Septic shock [None]
  - Neoplasm malignant [None]
  - Condition aggravated [None]
